FAERS Safety Report 8570200-8 (Version None)
Quarter: 2012Q3

REPORT INFORMATION
  Report Type: 
  Country: None (occurrence: None)
  Receive Date: 20120803
  Receipt Date: 20120731
  Transmission Date: 20120928
  Serious: Yes (Death)
  Sender: FDA-Public Use
  Company Number: AU-B.I. PHARMACEUTICALS,INC./RIDGEFIELD-2012-AU-01196AU

PATIENT
  Sex: Male
  Weight: 65 kg

DRUGS (4)
  1. PRADAXA [Suspect]
     Indication: ATRIAL FIBRILLATION
  2. PRISTIQ [Concomitant]
     Dates: start: 20120411
  3. CYMBALTA [Concomitant]
     Dates: start: 20111004
  4. PRADAXA [Suspect]
     Indication: CEREBROVASCULAR ACCIDENT PROPHYLAXIS
     Dates: start: 20110823, end: 20120702

REACTIONS (2)
  - PROSTATE CANCER [None]
  - RENAL IMPAIRMENT [None]
